FAERS Safety Report 20529569 (Version 2)
Quarter: 2022Q2

REPORT INFORMATION
  Report Type: Spontaneous
  Country: IR (occurrence: IR)
  Receive Date: 20220301
  Receipt Date: 20220401
  Transmission Date: 20220721
  Serious: Yes (Life-Threatening, Hospitalization, Other)
  Sender: FDA-Public Use
  Company Number: IR-MLMSERVICE-20220209-3364497-1

PATIENT
  Age: 13 Year
  Sex: Male

DRUGS (9)
  1. MELPHALAN [Suspect]
     Active Substance: MELPHALAN
     Indication: Bone marrow conditioning regimen
     Route: 065
  2. BUSULFAN [Suspect]
     Active Substance: BUSULFAN
     Indication: Bone marrow conditioning regimen
     Dosage: UNK
     Route: 065
  3. CYCLOSPORINE [Suspect]
     Active Substance: CYCLOSPORINE
     Indication: Prophylaxis against graft versus host disease
     Dosage: 50 MILLIGRAM, TWO TIMES A DAY
     Route: 048
  4. CYCLOPHOSPHAMIDE [Suspect]
     Active Substance: CYCLOPHOSPHAMIDE
     Indication: Bone marrow conditioning regimen
     Dosage: UNK
     Route: 065
  5. VALGANCICLOVIR [Concomitant]
     Active Substance: VALGANCICLOVIR
     Indication: BK virus infection
     Dosage: 750 MILLIGRAM
     Route: 048
  6. LEFLUNOMIDE [Concomitant]
     Active Substance: LEFLUNOMIDE
     Indication: BK virus infection
     Dosage: UNK
     Route: 065
  7. HUMAN IMMUNOGLOBULIN G [Concomitant]
     Active Substance: HUMAN IMMUNOGLOBULIN G
     Indication: BK virus infection
     Dosage: UNK
     Route: 042
  8. ALUM [Concomitant]
     Active Substance: POTASSIUM ALUM
     Indication: BK virus infection
     Dosage: 50 MILLILTRE, ONCE A DAY
     Route: 043
  9. ALPROSTADIL [Concomitant]
     Active Substance: ALPROSTADIL
     Indication: Product used for unknown indication
     Dosage: UNK, (250 MICROGRAM ALPROSTADIL IN 50 ML SALINE.)
     Route: 065

REACTIONS (2)
  - Polyomavirus viraemia [Recovering/Resolving]
  - Viral haemorrhagic cystitis [Recovering/Resolving]
